FAERS Safety Report 7446298-7 (Version None)
Quarter: 2011Q2

REPORT INFORMATION
  Report Type: 
  Country: None (occurrence: None)
  Receive Date: 20110429
  Receipt Date: 20100526
  Transmission Date: 20111010
  Serious: No
  Sender: FDA-Public Use
  Company Number: US-ASTRAZENECA-2010SE24418

PATIENT
  Age: 832 Month
  Sex: Female
  Weight: 86.2 kg

DRUGS (14)
  1. FERROUS SULFATE TAB [Concomitant]
     Route: 048
  2. AMOXICILLIN [Concomitant]
     Indication: DENTAL OPERATION
     Route: 048
  3. VITAMIN D [Concomitant]
     Route: 048
  4. LEVOXYL [Concomitant]
     Indication: HYPOTHYROIDISM
     Route: 048
  5. CALCIUM [Concomitant]
     Dosage: 1200 DAILY
     Route: 048
  6. VASOTEC [Concomitant]
     Indication: HYPERTENSION
     Route: 048
  7. ATENOLOL [Concomitant]
     Indication: HYPERTENSION
     Route: 048
  8. GC MI PASTE [Concomitant]
     Route: 004
  9. NEXIUM [Suspect]
     Indication: GASTROOESOPHAGEAL REFLUX DISEASE
     Route: 048
     Dates: start: 20060101
  10. DARVOCETTE [Concomitant]
     Indication: PAIN
     Dosage: 100/650 PRN
     Route: 048
  11. PLAQUENIL [Concomitant]
     Indication: ARTHRITIS
     Route: 048
  12. FORTICAL [Concomitant]
     Dosage: 200/ACT DAILY
     Route: 045
  13. PREDNISONE [Concomitant]
     Indication: ARTHRITIS
     Route: 048
  14. STOOL SOFTENER [Concomitant]
     Route: 048

REACTIONS (1)
  - SPINAL COMPRESSION FRACTURE [None]
